FAERS Safety Report 20730705 (Version 2)
Quarter: 2024Q2

REPORT INFORMATION
  Report Type: Spontaneous
  Country: US (occurrence: US)
  Receive Date: 20220420
  Receipt Date: 20240415
  Transmission Date: 20240716
  Serious: Yes (Other)
  Sender: FDA-Public Use
  Company Number: US-ASTELLAS-2022US000272

PATIENT
  Age: 69 Year
  Sex: Female

DRUGS (6)
  1. LEXISCAN [Suspect]
     Active Substance: REGADENOSON
     Indication: Scan myocardial perfusion
     Dosage: (FULL SYRINGE), OTHER (INJECTION APPROXIMATELY OVER 10 TO 15 SECONDS)
     Route: 042
     Dates: start: 20211215, end: 20211215
  2. LEXISCAN [Suspect]
     Active Substance: REGADENOSON
     Indication: Scan myocardial perfusion
     Dosage: (FULL SYRINGE), OTHER (INJECTION APPROXIMATELY OVER 10 TO 15 SECONDS)
     Route: 042
     Dates: start: 20211215, end: 20211215
  3. LEXISCAN [Suspect]
     Active Substance: REGADENOSON
     Indication: Scan myocardial perfusion
     Dosage: (FULL SYRINGE), OTHER (INJECTION APPROXIMATELY OVER 10 TO 15 SECONDS)
     Route: 042
     Dates: start: 20211215, end: 20211215
  4. LEXISCAN [Suspect]
     Active Substance: REGADENOSON
     Indication: Scan myocardial perfusion
     Dosage: (FULL SYRINGE), OTHER (INJECTION APPROXIMATELY OVER 10 TO 15 SECONDS)
     Route: 042
     Dates: start: 20211215, end: 20211215
  5. LEVOTHYROXINE [Concomitant]
     Active Substance: LEVOTHYROXINE\LEVOTHYROXINE SODIUM
     Indication: Product used for unknown indication
     Dosage: UNK UNK, UNKNOWN FREQ.
     Route: 065
  6. VITAMIN D3 [Concomitant]
     Active Substance: CHOLECALCIFEROL
     Indication: Product used for unknown indication
     Dosage: UNK UNK, UNKNOWN FREQ.
     Route: 065

REACTIONS (4)
  - Ventricular tachycardia [Recovered/Resolved]
  - Heart rate decreased [Unknown]
  - Blood pressure decreased [Unknown]
  - Incorrect product administration duration [Unknown]

NARRATIVE: CASE EVENT DATE: 20211215
